FAERS Safety Report 13202130 (Version 2)
Quarter: 2017Q2

REPORT INFORMATION
  Report Type: Report from Study
  Country: US (occurrence: US)
  Receive Date: 20170209
  Receipt Date: 20170428
  Transmission Date: 20170830
  Serious: Yes (Other)
  Sender: FDA-Public Use
  Company Number: US-ROCHE-1891018

PATIENT

DRUGS (2)
  1. BUPARLISIB [Suspect]
     Active Substance: BUPARLISIB HYDROCHLORIDE
     Indication: B-CELL LYMPHOMA
     Dosage: DAYS 1- 28
     Route: 065
  2. RITUXIMAB [Suspect]
     Active Substance: RITUXIMAB
     Indication: B-CELL LYMPHOMA
     Dosage: DAYS 2, 8, 15, AND 22 OF CYCLE 1 AND THEN DAY 1 OF CYCLES 3, 5, 7, 9, 11 FOR 28-DAY CYCLES.
     Route: 042

REACTIONS (9)
  - Lymphopenia [Unknown]
  - Anxiety [Unknown]
  - Neuropathy peripheral [Unknown]
  - Neutropenia [Unknown]
  - Febrile neutropenia [Unknown]
  - Sinusitis [Unknown]
  - Wrist fracture [Unknown]
  - Hyperglycaemia [Unknown]
  - Hypertension [Unknown]
